FAERS Safety Report 8225299-5 (Version None)
Quarter: 2012Q1

REPORT INFORMATION
  Report Type: 
  Country: None (occurrence: None)
  Receive Date: 20120321
  Receipt Date: 20120315
  Transmission Date: 20120608
  Serious: Yes (Hospitalization)
  Sender: FDA-Public Use
  Company Number: US-GLAXOSMITHKLINE-A0935752A

PATIENT
  Sex: Female
  Weight: 195.5 kg

DRUGS (8)
  1. METOLAZONE [Concomitant]
  2. ROPINIROLE [Concomitant]
  3. CYMBALTA [Concomitant]
  4. AVANDIA [Suspect]
     Indication: DIABETES MELLITUS
     Dosage: 8MG PER DAY
     Route: 048
     Dates: start: 20080506, end: 20100827
  5. LYRICA [Concomitant]
  6. INSULIN [Concomitant]
  7. LIPITOR [Concomitant]
  8. NEXIUM [Concomitant]

REACTIONS (4)
  - ANGINA PECTORIS [None]
  - TERMINAL STATE [None]
  - RENAL FAILURE ACUTE [None]
  - CARDIAC FAILURE CONGESTIVE [None]
